FAERS Safety Report 8045496-1 (Version None)
Quarter: 2012Q1

REPORT INFORMATION
  Report Type: 
  Country: None (occurrence: None)
  Receive Date: 20120113
  Receipt Date: 20120105
  Transmission Date: 20120608
  Serious: Yes (Hospitalization)
  Sender: FDA-Public Use
  Company Number: FR-JNJFOC-20100707751

PATIENT
  Age: 32 Year
  Sex: Female

DRUGS (5)
  1. REMICADE [Suspect]
     Dosage: 30TH INFUSION
     Route: 042
     Dates: start: 20100108
  2. METHOTREXATE [Concomitant]
     Indication: PSORIATIC ARTHROPATHY
     Dates: start: 20040101, end: 20100301
  3. REMICADE [Suspect]
     Route: 042
     Dates: start: 20060221
  4. REMICADE [Suspect]
     Route: 042
     Dates: start: 20100201
  5. REMICADE [Suspect]
     Indication: PSORIATIC ARTHROPATHY
     Dosage: 30TH INFUSION
     Route: 042
     Dates: start: 20091127

REACTIONS (4)
  - VASCULITIS [None]
  - LEUKOCYTOCLASTIC VASCULITIS [None]
  - VASCULITIS NECROTISING [None]
  - HENOCH-SCHONLEIN PURPURA [None]
